FAERS Safety Report 21495021 (Version 2)
Quarter: 2023Q1

REPORT INFORMATION
  Report Type: Spontaneous
  Country: US (occurrence: US)
  Receive Date: 20221022
  Receipt Date: 20230215
  Transmission Date: 20230418
  Serious: No
  Sender: FDA-Public Use
  Company Number: US-SA-SAC20221019001566

PATIENT
  Sex: Male

DRUGS (1)
  1. DUPIXENT [Suspect]
     Active Substance: DUPILUMAB
     Indication: Dermatitis atopic
     Dosage: 300 MG, Q4W
     Route: 058
     Dates: start: 20220120

REACTIONS (6)
  - Fatigue [Unknown]
  - Ocular discomfort [Unknown]
  - Insomnia [Unknown]
  - Dry eye [Recovered/Resolved]
  - Eye pruritus [Unknown]
  - Device use issue [Unknown]
